FAERS Safety Report 8888632 (Version 3)
Quarter: 2012Q4

REPORT INFORMATION
  Report Type: 
  Country: JP (occurrence: JP)
  Receive Date: 20121106
  Receipt Date: 20121126
  Transmission Date: 20130627
  Serious: Yes (Other)
  Sender: FDA-Public Use
  Company Number: JP-UCBSA-070192

PATIENT
  Age: 21 Year
  Sex: Male

DRUGS (1)
  1. XYZAL [Suspect]
     Indication: ECZEMA
     Route: 048
     Dates: end: 20121031

REACTIONS (2)
  - Loss of consciousness [Recovered/Resolved]
  - Fall [Unknown]
